FAERS Safety Report 6082706-4 (Version None)
Quarter: 2009Q1

REPORT INFORMATION
  Report Type: 
  Country: None (occurrence: None)
  Receive Date: 20090202
  Receipt Date: 20070712
  Transmission Date: 20090719
  Serious: No
  Sender: FDA-Public Use
  Company Number: 264458

PATIENT
  Age: 40 Year
  Sex: Male
  Weight: 73.9 kg

DRUGS (5)
  1. NOVOLOG [Suspect]
     Indication: TYPE 1 DIABETES MELLITUS
     Dosage: TID, SUBCUTANEOUS
     Route: 058
     Dates: start: 20040101
  2. LANTUS [Concomitant]
  3. METOPROLOL TARTRATE [Concomitant]
  4. ALTACE [Concomitant]
  5. ASPIRIN [Concomitant]

REACTIONS (1)
  - BLOOD GLUCOSE FLUCTUATION [None]
